FAERS Safety Report 9054903 (Version 4)
Quarter: 2018Q3

REPORT INFORMATION
  Report Type: Spontaneous
  Country: US (occurrence: US)
  Receive Date: 20130208
  Receipt Date: 20180705
  Transmission Date: 20181010
  Serious: No
  Sender: FDA-Public Use
  Company Number: US-PFIZER INC-2013048919

PATIENT
  Sex: Female

DRUGS (1)
  1. LYRICA [Suspect]
     Active Substance: PREGABALIN
     Dosage: UNK

REACTIONS (7)
  - Feeling cold [Unknown]
  - Withdrawal syndrome [Unknown]
  - Vomiting [Unknown]
  - Nervousness [Unknown]
  - Hot flush [Unknown]
  - Formication [Unknown]
  - Thinking abnormal [Unknown]
